FAERS Safety Report 5836559-7 (Version None)
Quarter: 2008Q3

REPORT INFORMATION
  Report Type: 
  Country: None (occurrence: None)
  Receive Date: 20080807
  Receipt Date: 20080729
  Transmission Date: 20090109
  Serious: Yes (Death, Congenital Anomaly, Other)
  Sender: FDA-Public Use
  Company Number: GB-TEVA-175127ISR

PATIENT

DRUGS (3)
  1. CARBAMAZEPINE [Suspect]
     Route: 064
  2. LAMOTRIGINE [Suspect]
     Route: 064
  3. ACETAZOLAMIDE [Suspect]
     Route: 064

REACTIONS (2)
  - INTRA-UTERINE DEATH [None]
  - PERICARDIAL HAEMORRHAGE [None]
